FAERS Safety Report 9060178 (Version 1)
Quarter: 2013Q1

REPORT INFORMATION
  Report Type: Spontaneous
  Country: US (occurrence: None)
  Receive Date: 20130206
  Receipt Date: 20130206
  Transmission Date: 20140127
  Serious: Yes (Other)
  Sender: FDA-Public Use
  Company Number: None

PATIENT
  Age: 17 Year
  Sex: Female
  Weight: 36.5 kg

DRUGS (1)
  1. LAMOTRIGINE 100 MG TEVA [Suspect]
     Indication: CONVULSION
     Route: 048
     Dates: start: 2008

REACTIONS (4)
  - Agitation [None]
  - Abdominal discomfort [None]
  - Aggression [None]
  - Product substitution issue [None]
